FAERS Safety Report 16068438 (Version 7)
Quarter: 2019Q3

REPORT INFORMATION
  Report Type: Report from Study
  Country: US (occurrence: US)
  Receive Date: 20190313
  Receipt Date: 20190910
  Transmission Date: 20191004
  Serious: Yes (Hospitalization)
  Sender: FDA-Public Use
  Company Number: US-ACTELION-A-US2018-181618

PATIENT
  Age: 56 Year
  Sex: Female
  Weight: 60.77 kg

DRUGS (22)
  1. VELETRI [Suspect]
     Active Substance: EPOPROSTENOL
     Dosage: 23 NG/KG, PER MIN
     Route: 042
  2. VELETRI [Suspect]
     Active Substance: EPOPROSTENOL
     Dosage: 55 NG/KG, PER MIN
     Route: 042
  3. TORSEMIDE. [Concomitant]
     Active Substance: TORSEMIDE
     Dosage: 5 MG, 3 TABS DAILY
     Dates: start: 20181013
  4. LYRICA [Concomitant]
     Active Substance: PREGABALIN
     Dosage: 100 MG, 2 CAPS TID
     Dates: start: 2018
  5. VELETRI [Suspect]
     Active Substance: EPOPROSTENOL
     Dosage: 37 NG/KG, PER MIN
     Route: 042
  6. MORPHINE [Concomitant]
     Active Substance: MORPHINE
     Dosage: 15 MG, UNK
     Dates: start: 2018
  7. PREDNISONE. [Concomitant]
     Active Substance: PREDNISONE
     Dosage: 5 MG, UNK
     Dates: start: 2016
  8. ZINC. [Concomitant]
     Active Substance: ZINC
     Dosage: 50 MG, UNK
     Dates: start: 2018
  9. VELETRI [Suspect]
     Active Substance: EPOPROSTENOL
     Dosage: 50 NG/KG, PER MIN
     Route: 042
  10. OXYCODONE [Concomitant]
     Active Substance: OXYCODONE
     Dosage: 10/325 MG 1 TAB BID PRN
     Dates: start: 2018
  11. SERTRALINE [Concomitant]
     Active Substance: SERTRALINE HYDROCHLORIDE
     Dosage: 25 MG, QD
  12. MULTIVITAMIN [Concomitant]
     Active Substance: VITAMINS
     Dosage: UNK MG, QD
  13. VELETRI [Suspect]
     Active Substance: EPOPROSTENOL
     Dosage: 52 NG/KG, PER MIN
     Route: 042
  14. CARISOPRODOL. [Concomitant]
     Active Substance: CARISOPRODOL
     Dosage: 350 MG, UNK
     Dates: start: 2018
  15. ZOLOFT [Concomitant]
     Active Substance: SERTRALINE HYDROCHLORIDE
     Dosage: 25 MG, QD
  16. ASPIRIN. [Concomitant]
     Active Substance: ASPIRIN
     Dosage: 81 MG, QD
  17. OPSUMIT [Suspect]
     Active Substance: MACITENTAN
     Indication: PULMONARY HYPERTENSION
     Dosage: 10 MG, QD
     Route: 048
     Dates: start: 20181030
  18. VELETRI [Suspect]
     Active Substance: EPOPROSTENOL
     Indication: PULMONARY HYPERTENSION
     Dosage: DOSE 21, RATE 75; TITRATE UP TO 4 DAYS
     Route: 042
     Dates: start: 20180716
  19. JARDIANCE [Concomitant]
     Active Substance: EMPAGLIFLOZIN
     Dosage: 25 MG, UNK
     Dates: start: 2017
  20. OMEPRAZOLE. [Concomitant]
     Active Substance: OMEPRAZOLE
     Dosage: 40 MG, UNK
  21. CELLCEPT [Concomitant]
     Active Substance: MYCOPHENOLATE MOFETIL\MYCOPHENOLATE MOFETIL HYDROCHLORIDE
     Dosage: 1000 MG IN AM, 500 MG IN PM
     Dates: start: 2016
  22. VELETRI [Suspect]
     Active Substance: EPOPROSTENOL
     Dosage: 32 NG/KG, PER MIN
     Route: 042

REACTIONS (30)
  - Decreased appetite [Not Recovered/Not Resolved]
  - Ear infection [Unknown]
  - Oxygen saturation abnormal [Unknown]
  - Catheter management [Unknown]
  - Fluid retention [Not Recovered/Not Resolved]
  - Condition aggravated [Unknown]
  - Arthralgia [Unknown]
  - Abdominal pain upper [Unknown]
  - Lip swelling [Not Recovered/Not Resolved]
  - Rash erythematous [Unknown]
  - Flushing [Unknown]
  - Throat irritation [Unknown]
  - Device occlusion [Unknown]
  - Diarrhoea [Unknown]
  - Vascular device infection [Unknown]
  - Abnormal loss of weight [Not Recovered/Not Resolved]
  - Fatigue [Unknown]
  - Viral infection [Unknown]
  - Pruritus [Unknown]
  - Dyspnoea exertional [Not Recovered/Not Resolved]
  - Pain [Unknown]
  - Feeling hot [Unknown]
  - Bone pain [Unknown]
  - Myalgia [Unknown]
  - Chills [Unknown]
  - Complication associated with device [Recovered/Resolved]
  - Pain in jaw [Unknown]
  - Malaise [Unknown]
  - Weight decreased [Unknown]
  - Memory impairment [Unknown]

NARRATIVE: CASE EVENT DATE: 2018
